FAERS Safety Report 12818026 (Version 3)
Quarter: 2017Q1

REPORT INFORMATION
  Report Type: Spontaneous
  Country: US (occurrence: US)
  Receive Date: 20161005
  Receipt Date: 20170313
  Transmission Date: 20170428
  Serious: No
  Sender: FDA-Public Use
  Company Number: US-LUNDBECK-DKLU2019999

PATIENT
  Age: 68 Year
  Sex: Female

DRUGS (5)
  1. CARBIDOPA. [Interacting]
     Active Substance: CARBIDOPA
     Indication: PARKINSON^S DISEASE
     Route: 065
  2. NORTHERA [Suspect]
     Active Substance: DROXIDOPA
     Indication: BLOOD PRESSURE MANAGEMENT
     Dosage: TITRATION SCHEDULE B (TITRATING)
     Route: 065
     Dates: start: 20160912
  3. NORTHERA [Interacting]
     Active Substance: DROXIDOPA
     Route: 065
  4. NORTHERA [Interacting]
     Active Substance: DROXIDOPA
     Route: 065
  5. NORTHERA [Interacting]
     Active Substance: DROXIDOPA
     Route: 065
     Dates: start: 20160915

REACTIONS (5)
  - Drug interaction [Recovering/Resolving]
  - Blood pressure decreased [Recovering/Resolving]
  - Blood pressure increased [Unknown]
  - Dizziness [Unknown]
  - Somnolence [Unknown]

NARRATIVE: CASE EVENT DATE: 20160915
